FAERS Safety Report 6805742-6 (Version None)
Quarter: 2010Q2

REPORT INFORMATION
  Report Type: 
  Country: None (occurrence: None)
  Receive Date: 20100628
  Receipt Date: 20080520
  Transmission Date: 20101027
  Serious: Yes (Death, Other)
  Sender: FDA-Public Use
  Company Number: US-PFIZER INC-2008043831

PATIENT
  Sex: Female
  Weight: 59 kg

DRUGS (5)
  1. SUTENT [Suspect]
     Indication: RENAL CELL CARCINOMA
     Dates: start: 20080301
  2. MORPHINE [Concomitant]
     Dosage: EVERY 12 HOURS
  3. VALSARTAN [Concomitant]
     Dosage: 12.5
  4. PREDNISONE [Concomitant]
  5. SIROLIMUS [Concomitant]

REACTIONS (4)
  - CARDIAC ARREST [None]
  - DISEASE PROGRESSION [None]
  - DYSPNOEA [None]
  - RENAL CELL CARCINOMA [None]
